FAERS Safety Report 16698244 (Version 1)
Quarter: 2019Q3

REPORT INFORMATION
  Report Type: Spontaneous
  Country: US (occurrence: US)
  Receive Date: 20190813
  Receipt Date: 20190813
  Transmission Date: 20191004
  Serious: Yes (Hospitalization, Other)
  Sender: FDA-Public Use
  Company Number: US-ELI_LILLY_AND_COMPANY-US201908000862

PATIENT
  Sex: Female

DRUGS (2)
  1. HUMULIN 70/30 [Suspect]
     Active Substance: INSULIN HUMAN
     Indication: TYPE 2 DIABETES MELLITUS
     Dosage: 45 U, EACH MORNING
     Route: 058
     Dates: start: 2007
  2. HUMULIN 70/30 [Suspect]
     Active Substance: INSULIN HUMAN
     Dosage: 35 U, EACH EVENING
     Route: 058
     Dates: start: 2007

REACTIONS (4)
  - Infection [Unknown]
  - Macular degeneration [Unknown]
  - Diverticulitis intestinal haemorrhagic [Recovering/Resolving]
  - Bladder injury [Recovering/Resolving]
